FAERS Safety Report 13945435 (Version 2)
Quarter: 2018Q1

REPORT INFORMATION
  Report Type: Spontaneous
  Country: US (occurrence: US)
  Receive Date: 20170907
  Receipt Date: 20180105
  Transmission Date: 20180508
  Serious: Yes (Hospitalization)
  Sender: FDA-Public Use
  Company Number: US-DSJP-DSU-2017-135450

PATIENT

DRUGS (3)
  1. BENICAR [Suspect]
     Active Substance: OLMESARTAN MEDOXOMIL
     Dosage: 40 MG, QD
     Dates: start: 20030609, end: 20140725
  2. BENICAR HCT [Suspect]
     Active Substance: HYDROCHLOROTHIAZIDE\OLMESARTAN MEDOXOMIL
     Indication: HYPERTENSION
     Dosage: UNK
     Dates: start: 20030609, end: 20140725
  3. BENICAR [Suspect]
     Active Substance: OLMESARTAN MEDOXOMIL
     Indication: PRODUCT USED FOR UNKNOWN INDICATION
     Dosage: 10 MG, QD
     Route: 048
     Dates: start: 20030609, end: 20140725

REACTIONS (7)
  - Colitis [Recovering/Resolving]
  - Hypokalaemia [Recovered/Resolved]
  - Gastritis [Recovered/Resolved]
  - Dehydration [Recovering/Resolving]
  - Haemorrhoids [Unknown]
  - Diverticulum [Unknown]
  - Drug administration error [Unknown]

NARRATIVE: CASE EVENT DATE: 200505
